FAERS Safety Report 25402165 (Version 2)
Quarter: 2025Q3

REPORT INFORMATION
  Report Type: Spontaneous
  Country: US (occurrence: US)
  Receive Date: 20250605
  Receipt Date: 20250819
  Transmission Date: 20251021
  Serious: Yes (Death, Hospitalization, Other)
  Sender: AMGEN
  Company Number: US-AMGEN-USASP2025109287

PATIENT

DRUGS (1)
  1. TARLATAMAB [Suspect]
     Active Substance: TARLATAMAB
     Indication: Small cell lung cancer
     Route: 065

REACTIONS (8)
  - Death [Fatal]
  - Urinary tract infection [Unknown]
  - Sepsis [Unknown]
  - Pneumonia [Unknown]
  - Cytokine release syndrome [Unknown]
  - Immune effector cell-associated neurotoxicity syndrome [Unknown]
  - Small cell lung cancer [Unknown]
  - Therapy partial responder [Unknown]
